FAERS Safety Report 8774671 (Version 2)
Quarter: 2012Q4

REPORT INFORMATION
  Report Type: Report from Study
  Country: JP (occurrence: JP)
  Receive Date: 20120910
  Receipt Date: 20121214
  Transmission Date: 20130627
  Serious: Yes (Other)
  Sender: FDA-Public Use
  Company Number: JP-NAPPMUNDI-MAG-2012-0002281

PATIENT
  Age: 50 Year
  Sex: Female

DRUGS (24)
  1. OXYCODONE [Suspect]
     Indication: CANCER PAIN
     Dosage: 40 mg, daily
     Route: 048
     Dates: start: 20120308, end: 20120408
  2. OXYCODONE [Suspect]
     Dosage: 60 mg, daily
     Route: 048
     Dates: start: 20120302, end: 20120307
  3. OXYCODONE [Suspect]
     Dosage: 40 mg, daily
     Route: 048
     Dates: start: 20120301, end: 20120301
  4. OXYCODONE HCL IR POWDER 0.5% [Suspect]
     Indication: CANCER PAIN
     Dosage: 10 mg, daily
     Route: 048
     Dates: start: 20120302, end: 20120408
  5. OXYCODONE HCL IR POWDER 0.5% [Suspect]
     Dosage: 5 mg, daily
     Route: 048
     Dates: start: 20120301, end: 20120301
  6. CEFEPIME HYDROCHLORIDE [Concomitant]
     Indication: FEBRILE NEUTROPENIA
     Dosage: UNK
     Dates: end: 20120302
  7. LUDIOMIL                           /00331902/ [Concomitant]
     Indication: CANCER PAIN
     Dosage: UNK
     Route: 048
     Dates: start: 20120301, end: 20120305
  8. TRAMAL [Concomitant]
     Indication: CANCER PAIN
     Dosage: UNK
     Route: 048
     Dates: end: 20120408
  9. LYRICA [Concomitant]
     Indication: CANCER PAIN
     Dosage: UNK
     Dates: start: 20120305
  10. VESICARE [Concomitant]
     Indication: URINARY INCONTINENCE
  11. FERROMIA /00023516/ [Concomitant]
     Indication: ANAEMIA
     Route: 048
  12. GASTER [Concomitant]
     Indication: PROPHYLAXIS
     Route: 048
  13. MOHRUS [Concomitant]
     Indication: CANCER PAIN
     Dosage: UNK
     Route: 062
  14. HIRUDOID                           /00723701/ [Concomitant]
     Indication: DRY SKIN
     Route: 061
  15. EMEND                              /01627301/ [Concomitant]
     Indication: PROPHYLAXIS
     Dosage: UNK
     Route: 048
     Dates: start: 20120315, end: 20120317
  16. MAGMITT [Concomitant]
     Indication: PROPHYLAXIS
  17. ALOXI [Concomitant]
     Indication: PROPHYLAXIS
  18. CAMPTO [Concomitant]
     Indication: CERVIX CARCINOMA RECURRENT
  19. CISPLATIN [Concomitant]
     Indication: CERVIX CARCINOMA RECURRENT
  20. CISPLATIN [Concomitant]
     Indication: METASTASES TO LYMPH NODES
  21. SOLACET D [Concomitant]
     Indication: PROPHYLAXIS
  22. SOLDEM [Concomitant]
     Indication: PROPHYLAXIS
  23. DECADRON                           /00016001/ [Concomitant]
     Indication: PROPHYLAXIS
  24. SEISHOKU [Concomitant]
     Indication: PROPHYLAXIS

REACTIONS (3)
  - Logorrhoea [Recovering/Resolving]
  - Somnolence [Recovering/Resolving]
  - Hallucination [Recovering/Resolving]
